FAERS Safety Report 15466182 (Version 5)
Quarter: 2019Q1

REPORT INFORMATION
  Report Type: Report from Study
  Country: None (occurrence: IE)
  Receive Date: 20181004
  Receipt Date: 20190214
  Transmission Date: 20190417
  Serious: Yes (Hospitalization)
  Sender: FDA-Public Use
  Company Number: IE-ABBVIE-18P-229-2475388-00

PATIENT
  Age: 75 Year
  Sex: Female
  Weight: 54 kg

DRUGS (23)
  1. VENETOCLAX. [Suspect]
     Active Substance: VENETOCLAX
     Route: 048
     Dates: start: 20180109, end: 20180115
  2. FORTISIP COMPACK [Concomitant]
     Indication: NUTRITIONAL SUPPLEMENTATION
     Route: 048
     Dates: start: 20180117
  3. VENETOCLAX. [Suspect]
     Active Substance: VENETOCLAX
     Indication: CHRONIC LYMPHOCYTIC LEUKAEMIA
     Route: 048
     Dates: start: 20171114, end: 20171120
  4. VENETOCLAX. [Suspect]
     Active Substance: VENETOCLAX
     Route: 048
     Dates: start: 20180116, end: 20180122
  5. ASPIRIN. [Concomitant]
     Active Substance: ASPIRIN
     Indication: THROMBOSIS PROPHYLAXIS
     Route: 048
     Dates: start: 20171205
  6. VALTREX [Concomitant]
     Active Substance: VALACYCLOVIR HYDROCHLORIDE
     Indication: ANTIVIRAL PROPHYLAXIS
     Route: 048
     Dates: start: 20180814
  7. VENETOCLAX. [Suspect]
     Active Substance: VENETOCLAX
     Route: 048
     Dates: start: 20171128, end: 20171204
  8. SODIUM CHLORIDE. [Concomitant]
     Active Substance: SODIUM CHLORIDE
     Indication: PROPHYLAXIS
     Route: 042
     Dates: start: 20171113, end: 20171115
  9. SODIUM CHLORIDE. [Concomitant]
     Active Substance: SODIUM CHLORIDE
     Route: 040
     Dates: start: 20171207, end: 20171207
  10. HYDROCORTISONE. [Concomitant]
     Active Substance: HYDROCORTISONE
     Indication: PROPHYLAXIS
  11. VENETOCLAX. [Suspect]
     Active Substance: VENETOCLAX
     Route: 048
     Dates: start: 20171205, end: 20171211
  12. VENETOCLAX. [Suspect]
     Active Substance: VENETOCLAX
     Route: 048
     Dates: start: 20180102, end: 20180108
  13. VENETOCLAX. [Suspect]
     Active Substance: VENETOCLAX
     Route: 048
     Dates: start: 20180123, end: 20180129
  14. IPRATROPIUM [Concomitant]
     Active Substance: IPRATROPIUM
     Indication: RESPIRATORY TRACT INFECTION
     Dosage: 500 UG
     Route: 055
     Dates: start: 20171221
  15. BISOPROLOL [Concomitant]
     Active Substance: BISOPROLOL
     Indication: CHEST DISCOMFORT
     Route: 048
     Dates: start: 20171205
  16. PIRITON [Concomitant]
     Active Substance: CHLORPHENIRAMINE MALEATE
     Indication: PROPHYLAXIS
     Route: 042
     Dates: start: 20171023
  17. PERFECTIL [Concomitant]
     Indication: ALOPECIA
     Route: 048
     Dates: start: 20180524
  18. CALCICHEW [Concomitant]
     Active Substance: CALCIUM CARBONATE
     Indication: OSTEOPOROSIS
     Route: 048
     Dates: start: 2012
  19. VENETOCLAX. [Suspect]
     Active Substance: VENETOCLAX
     Route: 048
     Dates: start: 20171121, end: 20171127
  20. VENETOCLAX. [Suspect]
     Active Substance: VENETOCLAX
     Route: 048
     Dates: start: 20180130, end: 20180925
  21. PIRITON [Concomitant]
     Active Substance: CHLORPHENIRAMINE MALEATE
     Indication: ADVERSE DRUG REACTION
  22. HYDROCORTISONE. [Concomitant]
     Active Substance: HYDROCORTISONE
     Indication: ADVERSE DRUG REACTION
     Route: 042
     Dates: start: 20171023
  23. EZETROL [Concomitant]
     Active Substance: EZETIMIBE
     Indication: CARDIOVASCULAR DISORDER
     Route: 048
     Dates: start: 20180501

REACTIONS (8)
  - Night sweats [Recovered/Resolved]
  - Lower respiratory tract infection [Recovered/Resolved]
  - Lower respiratory tract infection [Not Recovered/Not Resolved]
  - Bronchiectasis [Recovered/Resolved]
  - Fatigue [Recovered/Resolved]
  - Cough [Recovered/Resolved]
  - Dyspnoea exertional [Recovered/Resolved]
  - Lower respiratory tract infection [Recovered/Resolved]

NARRATIVE: CASE EVENT DATE: 20180904
